FAERS Safety Report 20815233 (Version 2)
Quarter: 2022Q3

REPORT INFORMATION
  Report Type: Spontaneous
  Country: US (occurrence: US)
  Receive Date: 20220511
  Receipt Date: 20220707
  Transmission Date: 20221027
  Serious: No
  Sender: FDA-Public Use
  Company Number: US-PFIZER INC-202200150887

PATIENT
  Age: 71 Year
  Sex: Female

DRUGS (1)
  1. XELJANZ XR [Suspect]
     Active Substance: TOFACITINIB CITRATE
     Indication: Rheumatoid arthritis
     Dosage: 11 MG, DAILY (1 TABLET EVERY DAY)

REACTIONS (7)
  - General physical health deterioration [Unknown]
  - Pain [Unknown]
  - Body height decreased [Unknown]
  - Frustration tolerance decreased [Unknown]
  - Product expiration date issue [Unknown]
  - Product label issue [Unknown]
  - Circumstance or information capable of leading to medication error [Unknown]
